FAERS Safety Report 23528030 (Version 1)
Quarter: 2024Q1

REPORT INFORMATION
  Report Type: Spontaneous
  Country: US (occurrence: US)
  Receive Date: 20240215
  Receipt Date: 20240215
  Transmission Date: 20240410
  Serious: Yes (Other)
  Sender: FDA-Public Use
  Company Number: US-FreseniusKabi-FK202402304

PATIENT

DRUGS (3)
  1. DILAUDID [Suspect]
     Active Substance: HYDROMORPHONE HYDROCHLORIDE
     Indication: Pain
     Dosage: EVER HAD THAT DRUG BEFORE AND IT WAS ONLY 0.5 MILLIGRAMS. IT WAS A VERY SMALL DOSE. TOOK IT ONLY ONC
  2. VYNDAMAX [Suspect]
     Active Substance: TAFAMIDIS
     Indication: Amyloidosis
     Dosage: THE LOT# IS 5209317A, EXPIRATION DATE IS 10/2024
  3. VYNDAMAX [Suspect]
     Active Substance: TAFAMIDIS

REACTIONS (2)
  - Adverse drug reaction [Unknown]
  - Decreased appetite [Unknown]
